FAERS Safety Report 23547056 (Version 4)
Quarter: 2024Q2

REPORT INFORMATION
  Report Type: Spontaneous
  Country: US (occurrence: US)
  Receive Date: 20240221
  Receipt Date: 20240430
  Transmission Date: 20240716
  Serious: Yes (Other)
  Sender: FDA-Public Use
  Company Number: US-JNJFOC-20240237334

PATIENT
  Age: 67 Year
  Sex: Female

DRUGS (14)
  1. STELARA [Suspect]
     Active Substance: USTEKINUMAB
     Indication: Crohn^s disease
     Route: 040
     Dates: start: 20231125
  2. STELARA [Suspect]
     Active Substance: USTEKINUMAB
     Route: 058
     Dates: start: 20240126
  3. STELARA [Suspect]
     Active Substance: USTEKINUMAB
     Route: 040
     Dates: start: 20231101
  4. ALLERTEC [CETIRIZINE] [Concomitant]
     Indication: Hypersensitivity
  5. SINGULAIR [Concomitant]
     Active Substance: MONTELUKAST SODIUM
     Indication: Hypersensitivity
  6. LEXAPRO [Concomitant]
     Active Substance: ESCITALOPRAM OXALATE
     Indication: Depression
  7. CALCIUM\CHOLECALCIFEROL [Concomitant]
     Active Substance: CALCIUM\CHOLECALCIFEROL
  8. XANAX [Concomitant]
     Active Substance: ALPRAZOLAM
  9. STRONTIUM MONOCITRATE [Concomitant]
     Active Substance: STRONTIUM MONOCITRATE
  10. VITAMIN B12 [Concomitant]
     Active Substance: CYANOCOBALAMIN
  11. BETA GLUCAN [Concomitant]
     Active Substance: BETA GLUCAN
  12. ERGOCALCIFEROL [Concomitant]
     Active Substance: ERGOCALCIFEROL
  13. PROBIOTICS NOS [Concomitant]
     Active Substance: PROBIOTICS NOS
  14. VITAMINS NOS [Concomitant]
     Active Substance: VITAMINS

REACTIONS (14)
  - Kidney infection [Unknown]
  - Sepsis [Unknown]
  - Urinary tract infection [Unknown]
  - Crohn^s disease [Unknown]
  - Arthralgia [Unknown]
  - Influenza like illness [Unknown]
  - Nausea [Unknown]
  - Oedema [Unknown]
  - Weight increased [Unknown]
  - Blood pressure increased [Unknown]
  - Decreased immune responsiveness [Unknown]
  - Drug ineffective [Unknown]
  - Insomnia [Unknown]
  - Product dose omission issue [Unknown]
